FAERS Safety Report 4867153-2 (Version None)
Quarter: 2005Q4

REPORT INFORMATION
  Report Type: 
  Country: None (occurrence: None)
  Receive Date: 20051228
  Receipt Date: 20051220
  Transmission Date: 20060501
  Serious: Yes (Hospitalization)
  Sender: FDA-Public Use
  Company Number: US-BOEHRINGER INGELHEIM PHARMACEUTICALS, INC.-2005-BP-21625BP

PATIENT
  Sex: Female
  Weight: 86.18 kg

DRUGS (8)
  1. ATROVENT [Suspect]
     Indication: ASTHMA
     Route: 055
     Dates: start: 19900101
  2. MIRAPEX [Suspect]
     Indication: RESTLESS LEGS SYNDROME
     Dates: start: 20030101
  3. ALBUTEROL [Suspect]
     Indication: ASTHMA
     Route: 055
     Dates: start: 19900101
  4. LEVALBUTEROL HCL [Suspect]
     Indication: ASTHMA
     Dates: start: 19900101
  5. PREDNISONE 50MG TAB [Concomitant]
     Indication: ASTHMA
  6. SINGULAIR [Concomitant]
     Indication: ASTHMA
     Dates: start: 20030101
  7. TILADE [Concomitant]
     Indication: ASTHMA
     Dates: start: 20050101
  8. ADVAIR DISKUS 250/50 [Concomitant]
     Indication: ASTHMA
     Dates: start: 20040101

REACTIONS (4)
  - CHEST PAIN [None]
  - ELECTROCARDIOGRAM ST SEGMENT ELEVATION [None]
  - HEPATIC ENZYME INCREASED [None]
  - LABORATORY TEST ABNORMAL [None]
